FAERS Safety Report 17415559 (Version 7)
Quarter: 2020Q3

REPORT INFORMATION
  Report Type: Report from Study
  Country: IL (occurrence: IL)
  Receive Date: 20200213
  Receipt Date: 20200803
  Transmission Date: 20201102
  Serious: Yes (Other)
  Sender: FDA-Public Use
  Company Number: NVSC2020IL004409

PATIENT
  Age: 76 Year
  Sex: Male
  Weight: 60 kg

DRUGS (1)
  1. REVOLADE [Suspect]
     Active Substance: ELTROMBOPAG
     Indication: IMMUNE THROMBOCYTOPENIA
     Dosage: 50 MG, QD
     Route: 048
     Dates: start: 20191202

REACTIONS (7)
  - Confusional state [Not Recovered/Not Resolved]
  - Asthenia [Not Recovered/Not Resolved]
  - Abdominal distension [Not Recovered/Not Resolved]
  - Memory impairment [Not Recovered/Not Resolved]
  - Blood pressure increased [Recovered/Resolved]
  - Platelet count decreased [Recovering/Resolving]
  - Blood creatinine increased [Not Recovered/Not Resolved]
